FAERS Safety Report 8119715-7 (Version None)
Quarter: 2012Q1

REPORT INFORMATION
  Report Type: 
  Country: None (occurrence: None)
  Receive Date: 20120207
  Receipt Date: 20120204
  Transmission Date: 20120608
  Serious: Yes (Hospitalization, Other)
  Sender: FDA-Public Use
  Company Number: PHHY2012AT004623

PATIENT
  Age: 35 Year
  Sex: Female

DRUGS (2)
  1. ZOLEDRONOC ACID [Suspect]
     Route: 042
  2. ZOLEDRONOC ACID [Suspect]
     Route: 042

REACTIONS (13)
  - ARTHRALGIA [None]
  - TOOTHACHE [None]
  - SPINAL FRACTURE [None]
  - BONE MARROW OEDEMA [None]
  - FACIAL BONES FRACTURE [None]
  - MALAISE [None]
  - BONE PAIN [None]
  - BONE DISORDER [None]
  - PAIN IN JAW [None]
  - DRUG INEFFECTIVE [None]
  - BONE ATROPHY [None]
  - GAIT DISTURBANCE [None]
  - FEAR [None]
